FAERS Safety Report 5427432-7 (Version None)
Quarter: 2007Q3

REPORT INFORMATION
  Report Type: 
  Country: None (occurrence: None)
  Receive Date: 20070828
  Receipt Date: 20070822
  Transmission Date: 20080115
  Serious: Yes (Other)
  Sender: FDA-Public Use
  Company Number: US-ELI_LILLY_AND_COMPANY-US200708004723

PATIENT
  Age: 62 Year
  Sex: Female
  Weight: 205 kg

DRUGS (10)
  1. XIGRIS [Suspect]
     Indication: SEPSIS
     Dosage: UNK, UNK
     Route: 042
     Dates: start: 20070821, end: 20070822
  2. FLUCONAZOLE [Concomitant]
     Dosage: 200 MG, DAILY (1/D)
  3. MERREM [Concomitant]
     Dosage: 1 G, 2/D
  4. VANCOMYCIN HCL [Concomitant]
     Dosage: 1 G, DAILY (1/D)
  5. PHENYLEPHRINE [Concomitant]
     Dosage: 60 UG, OTHER
  6. NOREPINEPHRINE [Concomitant]
     Dosage: 12 UG, OTHER
  7. SOLU-CORTEF [Concomitant]
     Dosage: UNK, EVERY 6 HRS
  8. REGLAN [Concomitant]
     Dosage: 10 MG, EVERY 8 HRS
  9. PROCRIT [Concomitant]
     Dosage: 20000 U, OTHER
  10. PROTONIX [Concomitant]
     Dosage: 40 MG, DAILY (1/D)
     Route: 042

REACTIONS (2)
  - INTERNATIONAL NORMALISED RATIO INCREASED [None]
  - PLATELET COUNT DECREASED [None]
